FAERS Safety Report 5398957-8 (Version None)
Quarter: 2007Q3

REPORT INFORMATION
  Report Type: 
  Country: None (occurrence: None)
  Receive Date: 20070724
  Receipt Date: 20070724
  Transmission Date: 20080115
  Serious: Yes (Hospitalization)
  Sender: FDA-Public Use
  Company Number: None

PATIENT
  Age: 39 Year
  Sex: Female

DRUGS (3)
  1. HALOPERIDOL [Suspect]
     Indication: BIPOLAR DISORDER
     Dosage: 5 MG Q4PRN IM
     Route: 030
     Dates: start: 20060410, end: 20060417
  2. TRAZODONE HCL [Concomitant]
  3. TEGRETOL [Concomitant]

REACTIONS (1)
  - EXTRAPYRAMIDAL DISORDER [None]
